FAERS Safety Report 18242094 (Version 2)
Quarter: 2020Q4

REPORT INFORMATION
  Report Type: Report from Study
  Country: FR (occurrence: FR)
  Receive Date: 20200908
  Receipt Date: 20201002
  Transmission Date: 20210113
  Serious: Yes (Other)
  Sender: FDA-Public Use
  Company Number: FR-BAYER-2020-186566

PATIENT
  Age: 52 Year
  Sex: Female

DRUGS (9)
  1. PANTOPRAZOLE [Concomitant]
     Active Substance: PANTOPRAZOLE
  2. ALPRAZOLAM. [Concomitant]
     Active Substance: ALPRAZOLAM
  3. LYRICA [Concomitant]
     Active Substance: PREGABALIN
  4. REGORAFENIB. [Suspect]
     Active Substance: REGORAFENIB
     Indication: SOFT TISSUE SARCOMA
     Dosage: 160 MG
     Route: 048
     Dates: start: 20200818, end: 20200818
  5. IZALGI [Concomitant]
     Active Substance: ACETAMINOPHEN\OPIUM
  6. IBUPROFEN. [Concomitant]
     Active Substance: IBUPROFEN
  7. BAVENCIO [Suspect]
     Active Substance: AVELUMAB
     Indication: SOFT TISSUE SARCOMA
     Dosage: UNK
     Route: 042
  8. VENTOLINE [SALBUTAMOL] [Concomitant]
     Active Substance: ALBUTEROL SULFATE
  9. SERETIDE [Concomitant]
     Active Substance: FLUTICASONE PROPIONATE\SALMETEROL XINAFOATE

REACTIONS (1)
  - Anaphylactic shock [Recovered/Resolved]

NARRATIVE: CASE EVENT DATE: 20200818
